FAERS Safety Report 10295180 (Version 1)
Quarter: 2014Q3

REPORT INFORMATION
  Report Type: Spontaneous
  Country: US (occurrence: US)
  Receive Date: 20140710
  Receipt Date: 20140710
  Transmission Date: 20150326
  Serious: Yes (Hospitalization, Other)
  Sender: FDA-Public Use
  Company Number: US-IAC KOREA XML-USA-2014-0113610

PATIENT
  Age: 46 Year
  Sex: Female

DRUGS (2)
  1. BUTRANS [Suspect]
     Active Substance: BUPRENORPHINE
     Dosage: 10 MCG/HR, WEEKLY
     Route: 062
     Dates: start: 201401
  2. BUTRANS [Suspect]
     Active Substance: BUPRENORPHINE
     Indication: PRODUCT USED FOR UNKNOWN INDICATION
     Dosage: 20 MCG/HR, WEEKLY
     Route: 062
     Dates: start: 20140228

REACTIONS (2)
  - Overdose [Unknown]
  - Unresponsive to stimuli [Recovering/Resolving]

NARRATIVE: CASE EVENT DATE: 201403
